FAERS Safety Report 5301903-6 (Version None)
Quarter: 2007Q2

REPORT INFORMATION
  Report Type: 
  Country: None (occurrence: None)
  Receive Date: 20070419
  Receipt Date: 20070413
  Transmission Date: 20071010
  Serious: Yes (Hospitalization)
  Sender: FDA-Public Use
  Company Number: PHBS2006JP19414

PATIENT
  Age: 48 Year
  Sex: Female

DRUGS (3)
  1. DICLOFENAC SODIUM [Suspect]
     Indication: DYSMENORRHOEA
     Dosage: UNK, UNK
     Route: 054
     Dates: start: 20051223, end: 20051226
  2. ACEMETACIN [Suspect]
     Indication: PYREXIA
     Dosage: UNK, UNK
     Route: 048
     Dates: start: 20051220
  3. LOXOPROFEN SODIUM [Suspect]
     Indication: PYREXIA
     Dosage: UNK, UNK
     Route: 048
     Dates: start: 19120320, end: 20061226

REACTIONS (18)
  - ABDOMINAL PAIN UPPER [None]
  - ABDOMINAL TENDERNESS [None]
  - ALANINE AMINOTRANSFERASE INCREASED [None]
  - ASPARTATE AMINOTRANSFERASE INCREASED [None]
  - BLOOD ALKALINE PHOSPHATASE INCREASED [None]
  - BLOOD FIBRINOGEN DECREASED [None]
  - C-REACTIVE PROTEIN INCREASED [None]
  - CHOLECYSTITIS [None]
  - DISSEMINATED INTRAVASCULAR COAGULATION [None]
  - GALLBLADDER DISORDER [None]
  - GASTRIC MUCOSAL HYPERTROPHY [None]
  - HEPATOBILIARY DISEASE [None]
  - LARGE INTESTINAL ULCER [None]
  - LIVER DISORDER [None]
  - PERITONITIS [None]
  - PLATELET COUNT DECREASED [None]
  - PYREXIA [None]
  - WHITE BLOOD CELL COUNT INCREASED [None]
